FAERS Safety Report 8267126-6 (Version None)
Quarter: 2012Q2

REPORT INFORMATION
  Report Type: 
  Country: None (occurrence: None)
  Receive Date: 20120409
  Receipt Date: 20120402
  Transmission Date: 20120825
  Serious: Yes (Hospitalization)
  Sender: FDA-Public Use
  Company Number: US-PFIZER INC-2012084437

PATIENT
  Sex: Female

DRUGS (2)
  1. MDX-1106 [Suspect]
     Indication: RENAL CELL CARCINOMA
     Dosage: 556 MG, DAILY
     Route: 042
     Dates: start: 20120110, end: 20120221
  2. AXITINIB [Suspect]
     Indication: RENAL CELL CARCINOMA
     Dosage: UNK
     Dates: start: 20120303

REACTIONS (3)
  - TOXICITY TO VARIOUS AGENTS [None]
  - HYPONATRAEMIA [None]
  - RENAL FAILURE ACUTE [None]
